FAERS Safety Report 7547670-7 (Version None)
Quarter: 2011Q2

REPORT INFORMATION
  Report Type: 
  Country: None (occurrence: None)
  Receive Date: 20110614
  Receipt Date: 20110608
  Transmission Date: 20111010
  Serious: Yes (Hospitalization, Other)
  Sender: FDA-Public Use
  Company Number: DE-ABBOTT-11P-062-0731096-00

PATIENT
  Sex: Female

DRUGS (13)
  1. ALLOPURINOL [Concomitant]
     Indication: PRODUCT USED FOR UNKNOWN INDICATION
  2. HUMIRA [Suspect]
     Indication: RHEUMATOID ARTHRITIS
     Route: 058
     Dates: start: 20100909
  3. HUMIRA [Suspect]
     Indication: EYE DISORDER
     Route: 058
     Dates: start: 20110406
  4. HUMIRA [Suspect]
     Indication: RHEUMATOID FACTOR NEGATIVE
  5. TORSEMIDE [Concomitant]
     Indication: PRODUCT USED FOR UNKNOWN INDICATION
  6. PREDNISOLONE [Concomitant]
     Indication: PRODUCT USED FOR UNKNOWN INDICATION
     Route: 048
  7. FENTANYL [Concomitant]
     Indication: PRODUCT USED FOR UNKNOWN INDICATION
     Dosage: EVERY 3RD DAY
     Route: 062
  8. LEFLUNOMIDE [Concomitant]
     Indication: PRODUCT USED FOR UNKNOWN INDICATION
     Dates: start: 20100701, end: 20100801
  9. BISPHOSPHONAT [Concomitant]
     Indication: PRODUCT USED FOR UNKNOWN INDICATION
  10. VITAMIN D [Concomitant]
     Indication: PRODUCT USED FOR UNKNOWN INDICATION
  11. ENOXAPARIN SODIUM [Concomitant]
     Indication: PRODUCT USED FOR UNKNOWN INDICATION
     Dosage: TWICE
     Route: 058
  12. HUMIRA [Suspect]
     Indication: PROTEIN TOTAL ABNORMAL
  13. METOPROLOL SUCCINATE [Concomitant]
     Indication: PRODUCT USED FOR UNKNOWN INDICATION
     Route: 048

REACTIONS (11)
  - STOMATITIS [None]
  - CEREBELLAR ARTERY THROMBOSIS [None]
  - ATRIOVENTRICULAR BLOCK FIRST DEGREE [None]
  - LUMBAR VERTEBRAL FRACTURE [None]
  - RENAL FAILURE ACUTE [None]
  - DEEP VEIN THROMBOSIS [None]
  - METAPLASIA [None]
  - OSTEOPOROSIS [None]
  - GASTRITIS EROSIVE [None]
  - THROMBOEMBOLECTOMY [None]
  - PANCYTOPENIA [None]
